FAERS Safety Report 12962758 (Version 1)
Quarter: 2016Q4

REPORT INFORMATION
  Report Type: Spontaneous
  Country: TR (occurrence: BR)
  Receive Date: 20161121
  Receipt Date: 20161121
  Transmission Date: 20170207
  Serious: Yes (Life-Threatening, Hospitalization)
  Sender: FDA-Public Use
  Company Number: TR-ASTRAZENECA-2016SF23408

PATIENT
  Age: 28 Year
  Sex: Female

DRUGS (5)
  1. MIDAZOLAM [Suspect]
     Active Substance: MIDAZOLAM\MIDAZOLAM HYDROCHLORIDE
     Route: 065
  2. SODIUM BICARBONATE. [Suspect]
     Active Substance: SODIUM BICARBONATE
     Route: 065
  3. QUETIAPINE. [Suspect]
     Active Substance: QUETIAPINE
     Indication: DEPRESSION
     Route: 048
  4. BUPROPION. [Suspect]
     Active Substance: BUPROPION
     Indication: DEPRESSION
     Route: 065
  5. LEVOTHYROXINE. [Suspect]
     Active Substance: LEVOTHYROXINE
     Route: 065

REACTIONS (6)
  - Tachycardia [Recovered/Resolved]
  - Hypotension [Recovered/Resolved]
  - Suicide attempt [Recovered/Resolved]
  - Bradycardia [Recovered/Resolved]
  - Hypopnoea [Recovered/Resolved]
  - Generalised tonic-clonic seizure [Recovered/Resolved]
